FAERS Safety Report 6105546-6 (Version None)
Quarter: 2009Q1

REPORT INFORMATION
  Report Type: 
  Country: None (occurrence: None)
  Receive Date: 20090306
  Receipt Date: 20090304
  Transmission Date: 20090719
  Serious: Yes (Other)
  Sender: FDA-Public Use
  Company Number: B0563423A

PATIENT
  Age: 71 Year
  Sex: Female

DRUGS (4)
  1. VIROLEX [Suspect]
     Indication: ENCEPHALITIS
     Dosage: 3G PER DAY
     Route: 042
     Dates: start: 20081022
  2. CLIVARIN [Concomitant]
     Dosage: .6ML PER DAY
     Route: 058
  3. GABAPENTIN [Concomitant]
     Dosage: 600MG PER DAY
     Route: 048
  4. METHYLPHENOBARBITONE [Concomitant]
     Route: 048

REACTIONS (3)
  - HAEMODIALYSIS [None]
  - RENAL FAILURE ACUTE [None]
  - RENAL TUBULAR NECROSIS [None]
